FAERS Safety Report 16370939 (Version 1)
Quarter: 2019Q2

REPORT INFORMATION
  Report Type: Report from Study
  Country: None (occurrence: US)
  Receive Date: 20190530
  Receipt Date: 20190530
  Transmission Date: 20190711
  Serious: Yes (Death)
  Sender: FDA-Public Use
  Company Number: US-ABBVIE-19S-163-2801897-00

PATIENT
  Sex: Female

DRUGS (1)
  1. CREON [Suspect]
     Active Substance: PANCRELIPASE AMYLASE\PANCRELIPASE LIPASE\PANCRELIPASE PROTEASE
     Indication: NEOPLASM MALIGNANT
     Dosage: 1 CAPSULE 3 TIMES A DAY
     Route: 048
     Dates: start: 20190501

REACTIONS (1)
  - Neoplasm malignant [Fatal]
